FAERS Safety Report 7276358-5 (Version None)
Quarter: 2011Q1

REPORT INFORMATION
  Report Type: 
  Country: None (occurrence: None)
  Receive Date: 20110204
  Receipt Date: 20110129
  Transmission Date: 20110831
  Serious: Yes (Other)
  Sender: FDA-Public Use
  Company Number: CH-US-EMD SERONO, INC.-230013J09CHE

PATIENT
  Sex: Female

DRUGS (6)
  1. DAFALGAN [Concomitant]
     Indication: INFLUENZA LIKE ILLNESS
     Route: 048
  2. MAXALT [Concomitant]
     Indication: MIGRAINE
     Route: 048
  3. REBIF [Suspect]
     Indication: MULTIPLE SCLEROSIS
     Route: 058
     Dates: start: 20030926, end: 20090401
  4. REBIF [Suspect]
     Route: 058
     Dates: start: 20091001, end: 20091101
  5. REBIF [Suspect]
     Route: 058
     Dates: start: 20090101, end: 20090901
  6. REBIF [Suspect]
     Route: 058
     Dates: start: 20091201

REACTIONS (4)
  - PERIPHERAL COLDNESS [None]
  - RAYNAUD'S PHENOMENON [None]
  - HEPATIC ENZYME INCREASED [None]
  - RETINAL HAEMORRHAGE [None]
